FAERS Safety Report 9556073 (Version 2)
Quarter: 2013Q4

REPORT INFORMATION
  Report Type: Spontaneous
  Country: FR (occurrence: None)
  Receive Date: 20130924
  Receipt Date: 20131001
  Transmission Date: 20140711
  Serious: Yes (Other)
  Sender: FDA-Public Use
  Company Number: 2013FR002521

PATIENT
  Age: 79 Year
  Sex: Male
  Weight: 55 kg

DRUGS (3)
  1. PONATINIB [Suspect]
     Indication: PRODUCT USED FOR UNKNOWN INDICATION
     Route: 048
     Dates: start: 20120808
  2. KARDEGIC (ACETYLSALICYLATE LYSINE) [Concomitant]
  3. TAHOR (ATORVASTATIN CALCIUM) [Concomitant]

REACTIONS (1)
  - Transient ischaemic attack [None]
